FAERS Safety Report 5976702-2 (Version None)
Quarter: 2008Q4

REPORT INFORMATION
  Report Type: 
  Country: None (occurrence: None)
  Receive Date: 20081128
  Receipt Date: 20081113
  Transmission Date: 20090506
  Serious: Yes (Hospitalization)
  Sender: FDA-Public Use
  Company Number: 2008US001041

PATIENT
  Age: 52 Year
  Sex: Female
  Weight: 65.8 kg

DRUGS (1)
  1. AMEVIVE [Suspect]
     Indication: PSORIASIS
     Dosage: 15 MG, WEEKLY, INTRAMUSCULAR
     Route: 030
     Dates: start: 20060922, end: 20061227

REACTIONS (3)
  - APPENDICITIS [None]
  - LIVER DISORDER [None]
  - UTERINE LEIOMYOMA [None]
